FAERS Safety Report 8662230 (Version 3)
Quarter: 2013Q4

REPORT INFORMATION
  Report Type: Spontaneous
  Country: US (occurrence: US)
  Receive Date: 20120712
  Receipt Date: 20131125
  Transmission Date: 20140711
  Serious: Yes (Other)
  Sender: FDA-Public Use
  Company Number: US-ASTRAZENECA-2010SE56371

PATIENT
  Age: 55 Year
  Sex: Male

DRUGS (7)
  1. CRESTOR [Suspect]
     Route: 048
  2. BRILINTA [Suspect]
     Indication: MYOCARDIAL INFARCTION
     Route: 048
  3. PLAVIX [Suspect]
     Route: 065
  4. ASPIRIN [Concomitant]
  5. ATENOLOL [Concomitant]
  6. DIABETIC VITAMINS [Concomitant]
  7. CHROMINUM SUPPLEMENT [Concomitant]

REACTIONS (7)
  - Myocardial infarction [Unknown]
  - Coronary artery occlusion [Unknown]
  - Hypertension [Unknown]
  - Schizophrenia [Unknown]
  - Diabetes mellitus [Unknown]
  - Depression [Unknown]
  - Drug ineffective [Unknown]
